FAERS Safety Report 22305062 (Version 4)
Quarter: 2023Q2

REPORT INFORMATION
  Report Type: Report from Study
  Country: IL (occurrence: IL)
  Receive Date: 20230510
  Receipt Date: 20230525
  Transmission Date: 20230721
  Serious: Yes (Hospitalization, Other)
  Sender: FDA-Public Use
  Company Number: IL-TAKEDA-2023TUS045319

PATIENT
  Sex: Male

DRUGS (12)
  1. VELAGLUCERASE ALFA [Suspect]
     Active Substance: VELAGLUCERASE ALFA
     Indication: Gaucher^s disease
     Dosage: 30 INTERNATIONAL UNIT/KILOGRAM, Q2WEEKS
     Route: 065
     Dates: start: 20140908
  2. ACETAMINOPHEN\CAFFEINE\CODEINE PHOSPHATE [Concomitant]
     Active Substance: ACETAMINOPHEN\CAFFEINE\CODEINE PHOSPHATE
     Indication: Parkinson^s disease
     Route: 048
  3. MANNITOL [Concomitant]
     Active Substance: MANNITOL
     Indication: Parkinson^s disease
     Dosage: UNK
     Route: 048
     Dates: end: 2017
  4. ALENDRONATE SODIUM [Concomitant]
     Active Substance: ALENDRONATE SODIUM
     Indication: Osteoporosis
     Dosage: UNK UNK, 1/WEEK
     Route: 048
     Dates: start: 200111, end: 201207
  5. CALCIUM\VITAMIN D [Concomitant]
     Active Substance: CALCIUM\VITAMIN D
     Indication: Osteoporosis
     Dosage: UNK UNK, QD
     Route: 048
     Dates: start: 200111
  6. CYANOCOBALAMIN [Concomitant]
     Active Substance: CYANOCOBALAMIN
     Indication: Vitamin B12 decreased
     Dosage: UNK UNK, MONTHLY
     Route: 030
     Dates: start: 200201, end: 201201
  7. ASPIRIN [Concomitant]
     Active Substance: ASPIRIN
     Indication: Cardiac disorder
     Dosage: UNK UNK, QD
     Route: 048
     Dates: start: 200807
  8. AZILECT [Concomitant]
     Active Substance: RASAGILINE MESYLATE
     Indication: Parkinson^s disease
     Dosage: 1 MILLIGRAM, QD
     Route: 048
     Dates: start: 20120715
  9. PRAMIPEXOLE [Concomitant]
     Active Substance: PRAMIPEXOLE
     Indication: Parkinson^s disease
     Dosage: 1.5 MILLIGRAM, BID
     Route: 048
     Dates: start: 201311
  10. COUMADIN [Concomitant]
     Active Substance: WARFARIN SODIUM
     Indication: Transient ischaemic attack
     Dosage: UNK UNK, QD
     Route: 048
     Dates: start: 2014, end: 20140508
  11. AMBROXOL [Concomitant]
     Active Substance: AMBROXOL
     Indication: Gaucher^s disease
     Dosage: UNK UNK, BID
     Route: 048
     Dates: start: 201411
  12. CLOPIDOGREL [Concomitant]
     Active Substance: CLOPIDOGREL BISULFATE
     Indication: Transient ischaemic attack
     Dosage: UNK UNK, QD
     Route: 048
     Dates: start: 201411

REACTIONS (2)
  - Internal haemorrhage [Recovered/Resolved]
  - Splenic haemorrhage [Recovered/Resolved]

NARRATIVE: CASE EVENT DATE: 20230503
